FAERS Safety Report 19504553 (Version 3)
Quarter: 2022Q3

REPORT INFORMATION
  Report Type: Report from Study
  Country: US (occurrence: US)
  Receive Date: 20210708
  Receipt Date: 20220727
  Transmission Date: 20221026
  Serious: Yes (Other)
  Sender: FDA-Public Use
  Company Number: US-SA-2019SA276375

PATIENT
  Age: 31 Year
  Sex: Female

DRUGS (3)
  1. IMIGLUCERASE [Suspect]
     Active Substance: IMIGLUCERASE
     Indication: Gaucher^s disease
     Dosage: 4800 MG (4400 IU), QOW
     Route: 041
     Dates: start: 20190830
  2. FLUOXETINE [Concomitant]
     Active Substance: FLUOXETINE HYDROCHLORIDE
  3. ZOLOFT [Concomitant]
     Active Substance: SERTRALINE HYDROCHLORIDE
     Dosage: 50MG,QD
     Dates: start: 20220622

REACTIONS (15)
  - Cholelithiasis [Recovering/Resolving]
  - Abdominal pain [Not Recovered/Not Resolved]
  - Pain [Not Recovered/Not Resolved]
  - Chills [Not Recovered/Not Resolved]
  - Splenomegaly [Not Recovered/Not Resolved]
  - Abdominal discomfort [Not Recovered/Not Resolved]
  - Hordeolum [Not Recovered/Not Resolved]
  - Periorbital swelling [Not Recovered/Not Resolved]
  - Haematocrit decreased [Not Recovered/Not Resolved]
  - Platelet count decreased [Not Recovered/Not Resolved]
  - Liver function test increased [Not Recovered/Not Resolved]
  - Blood bilirubin increased [Recovering/Resolving]
  - Bone loss [Not Recovered/Not Resolved]
  - Device operational issue [Not Recovered/Not Resolved]
  - Poor venous access [Not Recovered/Not Resolved]

NARRATIVE: CASE EVENT DATE: 20200417
